FAERS Safety Report 17915826 (Version 7)
Quarter: 2022Q1

REPORT INFORMATION
  Report Type: Report from Study
  Country: CA (occurrence: CA)
  Receive Date: 20200619
  Receipt Date: 20220310
  Transmission Date: 20220424
  Serious: Yes (Hospitalization, Other)
  Sender: FDA-Public Use
  Company Number: PHHY2019CA041871

PATIENT
  Age: 60 Year
  Sex: Male

DRUGS (12)
  1. COSENTYX [Suspect]
     Active Substance: SECUKINUMAB
     Indication: Psoriatic arthropathy
     Dosage: 450 MG, QMO
     Route: 058
     Dates: start: 20181224
  2. COSENTYX [Suspect]
     Active Substance: SECUKINUMAB
     Dosage: 300 MG, QMO
     Route: 058
     Dates: start: 20190221
  3. COSENTYX [Suspect]
     Active Substance: SECUKINUMAB
     Dosage: 300 MG, QMO
     Route: 058
     Dates: start: 20190321
  4. COSENTYX [Suspect]
     Active Substance: SECUKINUMAB
     Dosage: 450 MG, QMO
     Route: 058
     Dates: start: 20190521
  5. COSENTYX [Suspect]
     Active Substance: SECUKINUMAB
     Dosage: 450 MG, QMO
     Route: 058
     Dates: end: 20200529
  6. CORTISONE [Concomitant]
     Active Substance: CORTISONE
     Indication: Product used for unknown indication
     Dosage: UNK
     Route: 058
  7. NAPROXEN [Concomitant]
     Active Substance: NAPROXEN
     Indication: Product used for unknown indication
     Dosage: UNK
     Route: 065
  8. IBUPROFEN [Concomitant]
     Active Substance: IBUPROFEN
     Indication: Product used for unknown indication
     Dosage: UNK
     Route: 065
  9. CELEBREX [Concomitant]
     Active Substance: CELECOXIB
     Indication: Product used for unknown indication
     Dosage: UNK
     Route: 065
  10. VOLTAREN [Concomitant]
     Active Substance: DICLOFENAC SODIUM
     Indication: Product used for unknown indication
     Dosage: UNK
     Route: 061
  11. SULFASALAZINE [Concomitant]
     Active Substance: SULFASALAZINE
     Indication: Product used for unknown indication
     Dosage: UNK
     Route: 065
     Dates: start: 2015
  12. TYLENOL [Concomitant]
     Active Substance: ACETAMINOPHEN
     Indication: Product used for unknown indication
     Dosage: UNK (TYLENOL 3)
     Route: 065

REACTIONS (18)
  - Respiratory failure [Unknown]
  - Bone pain [Recovered/Resolved]
  - COVID-19 pneumonia [Unknown]
  - Pneumonia [Unknown]
  - Pulmonary oedema [Unknown]
  - Illness [Unknown]
  - Viral infection [Unknown]
  - Myalgia [Not Recovered/Not Resolved]
  - Joint swelling [Unknown]
  - Arthralgia [Unknown]
  - Dysstasia [Unknown]
  - Gait disturbance [Unknown]
  - Localised oedema [Recovering/Resolving]
  - Pain in extremity [Unknown]
  - Pain [Not Recovered/Not Resolved]
  - Dyspnoea [Unknown]
  - Renal disorder [Unknown]
  - Incorrect dose administered [Unknown]

NARRATIVE: CASE EVENT DATE: 20181224
